FAERS Safety Report 6191320-1 (Version None)
Quarter: 2009Q2

REPORT INFORMATION
  Report Type: 
  Country: None (occurrence: None)
  Receive Date: 20090515
  Receipt Date: 20090512
  Transmission Date: 20091009
  Serious: Yes (Other)
  Sender: FDA-Public Use
  Company Number: FR-WYE-G03665209

PATIENT
  Age: 48 Year
  Sex: Male

DRUGS (9)
  1. ADVIL [Suspect]
     Indication: VIRAL INFECTION
     Dosage: 1 TO 3 TABLETS DAILY
     Route: 048
     Dates: start: 20090401, end: 20090401
  2. ADVIL [Suspect]
     Indication: PYREXIA
  3. TERAZOSIN HCL [Concomitant]
     Route: 048
     Dates: end: 20090401
  4. DEBRIDAT [Concomitant]
     Dosage: 3 TABLETS TOTAL DAILY
     Route: 048
     Dates: end: 20090401
  5. DEROXAT [Concomitant]
     Dosage: 3 TABLETS TOTAL DAILY
     Route: 048
     Dates: end: 20090401
  6. PARACETAMOL [Concomitant]
     Indication: VIRAL INFECTION
     Dosage: UP TO 4 G PER DAY
     Route: 048
     Dates: start: 20090401, end: 20090401
  7. PARACETAMOL [Concomitant]
     Indication: PYREXIA
  8. VOLTAREN [Suspect]
     Indication: VIRAL INFECTION
     Dosage: 1 TO 2 TABLETS PER DAY
     Route: 048
     Dates: start: 20090401, end: 20090401
  9. VOLTAREN [Suspect]
     Indication: PYREXIA

REACTIONS (4)
  - HEPATITIS [None]
  - RASH GENERALISED [None]
  - RASH PRURITIC [None]
  - TOXIC SKIN ERUPTION [None]
